FAERS Safety Report 14155739 (Version 1)
Quarter: 2017Q4

REPORT INFORMATION
  Report Type: Spontaneous
  Country: US (occurrence: US)
  Receive Date: 20171103
  Receipt Date: 20171103
  Transmission Date: 20180321
  Serious: Yes (Other)
  Sender: FDA-Public Use
  Company Number: US-NOVEN PHARMACEUTICALS, INC.-US2017001266

PATIENT

DRUGS (1)
  1. MINIVELLE [Suspect]
     Active Substance: ESTRADIOL
     Indication: HORMONE REPLACEMENT THERAPY
     Dosage: 0.05 MG, UNKNOWN
     Route: 062
     Dates: start: 201503

REACTIONS (5)
  - Mastectomy [Recovered/Resolved]
  - Liposuction [Recovered/Resolved]
  - Breast reconstruction [Recovered/Resolved]
  - Therapy cessation [Not Recovered/Not Resolved]
  - Abdominoplasty [Recovered/Resolved]
